FAERS Safety Report 5034443-2 (Version None)
Quarter: 2006Q2

REPORT INFORMATION
  Report Type: 
  Country: None (occurrence: None)
  Receive Date: 20060620
  Receipt Date: 20060602
  Transmission Date: 20061013
  Serious: Yes (Death, Hospitalization)
  Sender: FDA-Public Use
  Company Number: 2006RR-02489

PATIENT
  Age: 48 Year
  Sex: Female

DRUGS (2)
  1. DOXYCYCLINE [Suspect]
     Indication: CHLAMYDIAL INFECTION
     Dosage: ORAL
     Route: 048
  2. PREDNISOLONE [Concomitant]

REACTIONS (6)
  - CARDIAC ARREST [None]
  - CONVULSION [None]
  - HAEMATEMESIS [None]
  - PALLOR [None]
  - RETINAL HAEMORRHAGE [None]
  - THROMBOTIC THROMBOCYTOPENIC PURPURA [None]
